FAERS Safety Report 11681846 (Version 1)
Quarter: 2015Q4

REPORT INFORMATION
  Report Type: Spontaneous
  Country: None (occurrence: None)
  Receive Date: 20151028
  Receipt Date: 20151028
  Transmission Date: 20160304
  Serious: No
  Sender: FDA-Public Use
  Company Number: None

PATIENT
  Age: 33 Year
  Sex: Female
  Weight: 95.26 kg

DRUGS (1)
  1. SAVELLA [Suspect]
     Active Substance: MILNACIPRAN HYDROCHLORIDE
     Indication: FIBROMYALGIA
     Dosage: 2+ YEARS??1 PILL
     Route: 048

REACTIONS (3)
  - Hypertension [None]
  - Palpitations [None]
  - Ventricular tachycardia [None]

NARRATIVE: CASE EVENT DATE: 20150210
